FAERS Safety Report 9908749 (Version 1)
Quarter: 2014Q1

REPORT INFORMATION
  Report Type: Spontaneous
  Country: US (occurrence: US)
  Receive Date: 20140219
  Receipt Date: 20140219
  Transmission Date: 20141002
  Serious: Yes (Other)
  Sender: FDA-Public Use
  Company Number: US-PFIZER INC-2014045476

PATIENT
  Age: 54 Year
  Sex: Male

DRUGS (6)
  1. ZOLOFT [Suspect]
     Indication: DEPRESSION
     Dosage: 50 MG, ONE Q AM
     Route: 048
     Dates: start: 20130220, end: 20130523
  2. ZOLOFT [Suspect]
     Indication: BIPOLAR DISORDER
  3. ZYPREXA [Suspect]
     Indication: BIPOLAR DISORDER
     Dosage: (2.5 MG + 5 MG), ONE QHS
     Route: 048
     Dates: start: 20130507, end: 20130613
  4. PRAVASTATIN [Concomitant]
     Dosage: UNK
  5. IMDUR [Concomitant]
     Dosage: UNK
  6. ATENOLOL [Concomitant]
     Dosage: UNK

REACTIONS (2)
  - Suicidal ideation [Recovered/Resolved]
  - Depression [Recovered/Resolved]
